FAERS Safety Report 7681728-7 (Version None)
Quarter: 2011Q3

REPORT INFORMATION
  Report Type: 
  Country: None (occurrence: None)
  Receive Date: 20110812
  Receipt Date: 20110808
  Transmission Date: 20111222
  Serious: Yes (Death)
  Sender: FDA-Public Use
  Company Number: BR-ASTRAZENECA-2011SE47233

PATIENT
  Age: 70 Year
  Sex: Male

DRUGS (10)
  1. CEBRALAT [Concomitant]
     Route: 048
  2. ALENIA [Concomitant]
     Route: 048
  3. SEROQUEL XR [Suspect]
     Indication: DEMENTIA
     Route: 048
     Dates: start: 20101101
  4. LOSARTANA [Concomitant]
     Route: 048
  5. HIDROCLOROTIAZIDA [Concomitant]
     Route: 048
  6. ARTROLIVE [Concomitant]
     Route: 048
  7. SEROQUEL XR [Suspect]
     Indication: AGGRESSION
     Route: 048
     Dates: start: 20101101
  8. OXCARBAZEPINE [Concomitant]
     Route: 048
  9. ACETAMINOPHEN W/ CODEINE [Concomitant]
     Route: 048
  10. CLONAZEPAM [Concomitant]
     Route: 048

REACTIONS (3)
  - ISCHAEMIC STROKE [None]
  - OFF LABEL USE [None]
  - EMPHYSEMA [None]
